FAERS Safety Report 6658196-7 (Version None)
Quarter: 2010Q1

REPORT INFORMATION
  Report Type: 
  Country: None (occurrence: None)
  Receive Date: 20100330
  Receipt Date: 20100323
  Transmission Date: 20100710
  Serious: Yes (Other)
  Sender: FDA-Public Use
  Company Number: US-MERCK-0911USA04326

PATIENT
  Age: 81 Year
  Sex: Female

DRUGS (1)
  1. FOSAMAX [Suspect]
     Indication: PROPHYLAXIS
     Route: 048
     Dates: start: 19910101, end: 20090101

REACTIONS (9)
  - ABSCESS [None]
  - BONE DENSITY DECREASED [None]
  - BONE FRAGMENTATION [None]
  - FISTULA [None]
  - ORAL HERPES [None]
  - ORAL PAIN [None]
  - OSTEONECROSIS [None]
  - TOOTH DISORDER [None]
  - VIRAL INFECTION [None]
